FAERS Safety Report 6754258-4 (Version None)
Quarter: 2010Q2

REPORT INFORMATION
  Report Type: 
  Country: None (occurrence: None)
  Receive Date: 20100603
  Receipt Date: 20100527
  Transmission Date: 20101027
  Serious: Yes (Hospitalization)
  Sender: FDA-Public Use
  Company Number: JP-MERCK-0806USA01856

PATIENT
  Age: 74 Year
  Sex: Male

DRUGS (5)
  1. HYZAAR [Suspect]
     Indication: HYPERTENSION
     Route: 048
     Dates: start: 20080101, end: 20080501
  2. SYAKUYAKU-KANZOTO [Suspect]
     Indication: BACK PAIN
     Route: 048
     Dates: start: 20080401, end: 20080501
  3. TOWARAT [Concomitant]
     Indication: HYPERTENSION
     Route: 048
  4. LIVALO [Concomitant]
     Indication: LIPIDS ABNORMAL
     Route: 048
     Dates: end: 20080515
  5. BUFFERIN [Concomitant]
     Indication: ANGINA PECTORIS
     Route: 048

REACTIONS (3)
  - ALTERED STATE OF CONSCIOUSNESS [None]
  - HYPOKALAEMIA [None]
  - HYPONATRAEMIA [None]
